FAERS Safety Report 22321766 (Version 1)
Quarter: 2023Q2

REPORT INFORMATION
  Report Type: Report from Study
  Country: US (occurrence: US)
  Receive Date: 20230516
  Receipt Date: 20230516
  Transmission Date: 20230722
  Serious: No
  Sender: FDA-Public Use
  Company Number: US-ACADIA PHARMACEUTICALS INC.-ACA-2023-PIM-001569

PATIENT
  Sex: Male

DRUGS (5)
  1. NUPLAZID [Suspect]
     Active Substance: PIMAVANSERIN TARTRATE
     Indication: Parkinson^s disease
     Dosage: 34 MILLIGRAM, QD
     Route: 048
     Dates: start: 2023
  2. CARBIDOPA [Concomitant]
     Active Substance: CARBIDOPA
  3. MIDODRINE [Concomitant]
     Active Substance: MIDODRINE
  4. DONEPEZIL [Concomitant]
     Active Substance: DONEPEZIL
  5. MEMANTINE [Concomitant]
     Active Substance: MEMANTINE

REACTIONS (3)
  - Condition aggravated [Unknown]
  - Confusional state [Unknown]
  - Hallucination [Unknown]
